FAERS Safety Report 23427913 (Version 2)
Quarter: 2024Q1

REPORT INFORMATION
  Report Type: Spontaneous
  Country: US (occurrence: US)
  Receive Date: 20240122
  Receipt Date: 20240328
  Transmission Date: 20240410
  Serious: No
  Sender: FDA-Public Use
  Company Number: US-PFIZER INC-202400018487

PATIENT
  Age: 50 Year
  Sex: Female
  Weight: 208 kg

DRUGS (2)
  1. XELJANZ XR [Suspect]
     Active Substance: TOFACITINIB CITRATE
     Indication: Arthritis
     Dosage: 11 MG
     Dates: start: 2021
  2. XELJANZ XR [Suspect]
     Active Substance: TOFACITINIB CITRATE
     Dosage: 11 MG, ONCE  DAILY
     Route: 048
     Dates: start: 20240314

REACTIONS (3)
  - Product dose omission issue [Unknown]
  - Pain [Unknown]
  - Sensitivity to weather change [Unknown]
